FAERS Safety Report 5340178-9 (Version None)
Quarter: 2007Q2

REPORT INFORMATION
  Report Type: 
  Country: None (occurrence: None)
  Receive Date: 20070531
  Receipt Date: 20070524
  Transmission Date: 20071010
  Serious: Yes (Other)
  Sender: FDA-Public Use
  Company Number: B0461729A

PATIENT
  Age: 63 Year
  Sex: Male

DRUGS (6)
  1. HYCAMTIN [Suspect]
     Indication: SMALL CELL LUNG CANCER METASTATIC
     Route: 042
     Dates: start: 20061204
  2. ZOFRAN [Concomitant]
     Indication: PROPHYLAXIS OF NAUSEA AND VOMITING
     Route: 042
  3. PLAVIX [Concomitant]
     Dosage: 1TAB PER DAY
     Route: 048
  4. TAHOR [Concomitant]
     Dosage: 1TAB PER DAY
     Route: 048
  5. DOMPERIDONE [Concomitant]
     Dosage: 2TAB PER DAY
     Route: 048
  6. EMEND [Concomitant]
     Indication: PROPHYLAXIS OF NAUSEA AND VOMITING
     Route: 048

REACTIONS (1)
  - VERTIGO [None]
